FAERS Safety Report 20737001 (Version 1)
Quarter: 2022Q2

REPORT INFORMATION
  Report Type: Spontaneous
  Country: CN (occurrence: CN)
  Receive Date: 20220421
  Receipt Date: 20220421
  Transmission Date: 20220721
  Serious: Yes (Hospitalization, Other)
  Sender: FDA-Public Use
  Company Number: CN-PURDUE PHARMA-USA-2022-0293202

PATIENT
  Age: 50 Year
  Sex: Male

DRUGS (3)
  1. LIDOCAINE [Suspect]
     Active Substance: LIDOCAINE
     Indication: Dental local anaesthesia
     Dosage: 2 ML, UNKOWN
     Route: 004
     Dates: start: 20200304
  2. LIDOCAINE [Suspect]
     Active Substance: LIDOCAINE
     Dosage: 2 ML, UNK
     Route: 048
  3. EPINEPHRINE [Suspect]
     Active Substance: EPINEPHRINE
     Indication: Dental local anaesthesia
     Dosage: 1 ML, UNKNOWN
     Route: 004

REACTIONS (1)
  - Acute coronary syndrome [Unknown]
